FAERS Safety Report 7773465-5 (Version None)
Quarter: 2011Q3

REPORT INFORMATION
  Report Type: 
  Country: None (occurrence: None)
  Receive Date: 20110922
  Receipt Date: 20110920
  Transmission Date: 20111222
  Serious: Yes (Hospitalization, Disabling, Other)
  Sender: FDA-Public Use
  Company Number: US-MERCK-1108USA01581

PATIENT
  Age: 60 Year
  Sex: Female

DRUGS (3)
  1. CALCIUM CARBONATE [Concomitant]
     Route: 065
     Dates: start: 20040101
  2. PHENERGAN HCL [Concomitant]
     Route: 065
  3. FOSAMAX [Suspect]
     Indication: OSTEOPOROSIS
     Route: 048
     Dates: start: 19960101, end: 20091001

REACTIONS (8)
  - FEMUR FRACTURE [None]
  - SPINAL FRACTURE [None]
  - HYPERTENSION [None]
  - BLOOD CHOLESTEROL INCREASED [None]
  - DENTAL CARIES [None]
  - BACK INJURY [None]
  - TOOTH DISORDER [None]
  - PAIN [None]
